FAERS Safety Report 9202791 (Version 2)
Quarter: 2013Q2

REPORT INFORMATION
  Report Type: Spontaneous
  Country: US (occurrence: US)
  Receive Date: 20130401
  Receipt Date: 20130514
  Transmission Date: 20140414
  Serious: Yes (Hospitalization)
  Sender: FDA-Public Use
  Company Number: US-B.I. PHARMACEUTICALS,INC./RIDGEFIELD-2013-BI-08336BP

PATIENT
  Age: 56 Year
  Sex: Female
  Weight: 60 kg

DRUGS (4)
  1. COMBIVENT [Suspect]
     Indication: CHRONIC OBSTRUCTIVE PULMONARY DISEASE
     Dosage: 18 MCG / 103 MCG; 108 MCG / 618 MCG
     Route: 055
     Dates: start: 2007
  2. LIBRIUM [Concomitant]
     Indication: ALCOHOL ABUSE
  3. VENTOLIN [Concomitant]
     Indication: DYSPNOEA
     Route: 055
  4. METFORMIN [Concomitant]
     Indication: DIABETES MELLITUS
     Route: 048

REACTIONS (14)
  - Nausea [Recovered/Resolved]
  - Palpitations [Recovered/Resolved]
  - Cerebrovascular accident [Unknown]
  - Fall [Recovered/Resolved]
  - Fibula fracture [Recovered/Resolved]
  - Hypoaesthesia [Not Recovered/Not Resolved]
  - Hypoaesthesia [Not Recovered/Not Resolved]
  - Product quality issue [Not Recovered/Not Resolved]
  - Abnormal loss of weight [Not Recovered/Not Resolved]
  - Oral discomfort [Not Recovered/Not Resolved]
  - Hypoaesthesia oral [Not Recovered/Not Resolved]
  - Oral discomfort [Not Recovered/Not Resolved]
  - Dry mouth [Not Recovered/Not Resolved]
  - Oral pain [Not Recovered/Not Resolved]
